FAERS Safety Report 24881042 (Version 1)
Quarter: 2025Q1

REPORT INFORMATION
  Report Type: Report from Study
  Country: CA (occurrence: CA)
  Receive Date: 20250124
  Receipt Date: 20250124
  Transmission Date: 20250409
  Serious: Yes (Other)
  Sender: ABBVIE
  Company Number: CA-ABBVIE-6092319

PATIENT
  Age: 64 Year
  Sex: Female

DRUGS (2)
  1. RINVOQ [Suspect]
     Active Substance: UPADACITINIB
     Indication: Colitis ulcerative
     Route: 048
     Dates: start: 20240403, end: 202412
  2. RINVOQ [Suspect]
     Active Substance: UPADACITINIB
     Indication: Colitis ulcerative
     Route: 048
     Dates: start: 202412

REACTIONS (5)
  - Ileostomy closure [Unknown]
  - Intestinal anastomosis [Unknown]
  - Anal haemorrhage [Unknown]
  - Abnormal faeces [Unknown]
  - Anorectal discomfort [Unknown]

NARRATIVE: CASE EVENT DATE: 20241201
